FAERS Safety Report 6518808-5 (Version None)
Quarter: 2009Q4

REPORT INFORMATION
  Report Type: 
  Country: None (occurrence: None)
  Receive Date: 20091228
  Receipt Date: 20091215
  Transmission Date: 20100525
  Serious: No
  Sender: FDA-Public Use
  Company Number: US-JNJFOC-20091205212

PATIENT
  Sex: Female
  Weight: 120.2 kg

DRUGS (6)
  1. DURAGESIC-100 [Suspect]
     Indication: INTERVERTEBRAL DISC DEGENERATION
     Route: 062
  2. DURAGESIC-100 [Suspect]
     Indication: INTERVERTEBRAL DISC PROTRUSION
     Route: 062
  3. XANAX [Concomitant]
     Indication: ANXIETY
     Route: 065
  4. PERCOCET [Concomitant]
     Indication: BREAKTHROUGH PAIN
     Route: 065
  5. LYRICA [Concomitant]
     Indication: PAIN
     Route: 065
  6. ZANAFLEX [Concomitant]
     Indication: MUSCLE RELAXANT THERAPY
     Route: 065

REACTIONS (3)
  - INADEQUATE ANALGESIA [None]
  - THERAPEUTIC RESPONSE DECREASED [None]
  - WRONG TECHNIQUE IN DRUG USAGE PROCESS [None]
